FAERS Safety Report 8958351 (Version 1)
Quarter: 2012Q4

REPORT INFORMATION
  Report Type: 
  Country: US (occurrence: US)
  Receive Date: 20121210
  Receipt Date: 20121210
  Transmission Date: 20130627
  Serious: Yes (Hospitalization)
  Sender: FDA-Public Use
  Company Number: US-GLAXOSMITHKLINE-A0818019A

PATIENT
  Sex: Female

DRUGS (1)
  1. AVANDIA [Suspect]
     Indication: DIABETES MELLITUS
     Route: 048
     Dates: start: 20000601, end: 20070701

REACTIONS (9)
  - Cardiac failure congestive [Unknown]
  - Myocardial infarction [Unknown]
  - Hip fracture [Unknown]
  - Arrhythmia [Unknown]
  - Headache [Unknown]
  - Dyspnoea [Unknown]
  - Vomiting [Unknown]
  - Vision blurred [Unknown]
  - Arthropathy [Unknown]
